FAERS Safety Report 6422619-9 (Version None)
Quarter: 2009Q4

REPORT INFORMATION
  Report Type: 
  Country: None (occurrence: None)
  Receive Date: 20091102
  Receipt Date: 20090930
  Transmission Date: 20100525
  Serious: No
  Sender: FDA-Public Use
  Company Number: US-BAYER-200935541NA

PATIENT
  Age: 55 Year
  Sex: Female

DRUGS (3)
  1. AVELOX [Suspect]
     Indication: RESPIRATORY TRACT INFECTION
  2. LOTREL [Concomitant]
  3. HORMONES NOS [Concomitant]

REACTIONS (3)
  - EAR DISCOMFORT [None]
  - HYPERSENSITIVITY [None]
  - RASH GENERALISED [None]
